FAERS Safety Report 5472294-5 (Version None)
Quarter: 2007Q3

REPORT INFORMATION
  Report Type: 
  Country: None (occurrence: None)
  Receive Date: 20070927
  Receipt Date: 20070917
  Transmission Date: 20080115
  Serious: Yes (Hospitalization)
  Sender: FDA-Public Use
  Company Number: 2007BI017396

PATIENT
  Age: 46 Year
  Sex: Female

DRUGS (4)
  1. AVONEX [Suspect]
     Indication: MULTIPLE SCLEROSIS
     Dosage: 30 UG; QW; IM
     Route: 030
     Dates: start: 19971101, end: 20030801
  2. AVONEX [Suspect]
     Indication: MULTIPLE SCLEROSIS
     Dosage: 30 UG; QW; IM
     Route: 030
     Dates: start: 20030901
  3. BACLOFEN [Concomitant]
  4. INTERFERON [Concomitant]

REACTIONS (7)
  - ABDOMINAL ADHESIONS [None]
  - APPENDICITIS PERFORATED [None]
  - CELLULITIS [None]
  - DIVERTICULAR PERFORATION [None]
  - MUSCLE SPASMS [None]
  - OVARIAN DISORDER [None]
  - PELVIC ABSCESS [None]
